FAERS Safety Report 25916202 (Version 1)
Quarter: 2025Q4

REPORT INFORMATION
  Report Type: Spontaneous
  Country: EU (occurrence: EU)
  Receive Date: 20251014
  Receipt Date: 20251014
  Transmission Date: 20260117
  Serious: Yes (Other)
  Sender: ASTELLAS
  Company Number: EU-ASTELLAS-2025-AER-055717

PATIENT
  Age: 36 Year
  Sex: Female
  Weight: 63 kg

DRUGS (10)
  1. ZOLBETUXIMAB [Suspect]
     Active Substance: ZOLBETUXIMAB
     Indication: Metastatic gastric cancer
     Dosage: DOSE (TARGET): 800 MG/M2
     Route: 065
     Dates: start: 20241111, end: 202507
  2. FLO [Concomitant]
     Indication: Metastatic gastric cancer
     Route: 065
     Dates: start: 202409
  3. FLO [Concomitant]
     Dosage: OXALIPLATIN: 140 MG, FOLINIC ACID: 400 MG, FLUOROURACIL: 4450 MG
     Route: 065
     Dates: start: 20241111, end: 202502
  4. ZOLEDRONIC ACID [Concomitant]
     Active Substance: ZOLEDRONIC ACID
     Indication: Metastatic gastric cancer
     Route: 065
     Dates: start: 202409
  5. Dexa [Concomitant]
     Indication: Product used for unknown indication
     Dosage: DOSE AND STRENGTH: 8, UNITS NOT REPORTED
     Route: 042
  6. NETUPITANT [Concomitant]
     Active Substance: NETUPITANT
     Indication: Product used for unknown indication
     Route: 042
  7. PALONOSETRON [Concomitant]
     Active Substance: PALONOSETRON
     Indication: Product used for unknown indication
     Route: 042
  8. OLANZAPINE [Concomitant]
     Active Substance: OLANZAPINE
     Indication: Product used for unknown indication
     Dosage: IN THE EVENING
     Route: 048
  9. OLANZAPINE [Concomitant]
     Active Substance: OLANZAPINE
     Dosage: SECOND COURSE?BEFORE THE EVENING
     Route: 048
     Dates: start: 202411
  10. FL(O) [Concomitant]
     Indication: Metastatic gastric cancer
     Route: 065
     Dates: start: 2025

REACTIONS (5)
  - Malignant neoplasm progression [Unknown]
  - Polyneuropathy [Unknown]
  - Nausea [Recovered/Resolved]
  - Blood alkaline phosphatase decreased [Unknown]
  - Off label use [Unknown]

NARRATIVE: CASE EVENT DATE: 20241101
